FAERS Safety Report 7983132-0 (Version None)
Quarter: 2011Q4

REPORT INFORMATION
  Report Type: 
  Country: None (occurrence: None)
  Receive Date: 20111215
  Receipt Date: 20111208
  Transmission Date: 20120403
  Serious: Yes (Hospitalization, Other)
  Sender: FDA-Public Use
  Company Number: US-TEVA-312795USA

PATIENT
  Age: 92 Year
  Sex: Male

DRUGS (1)
  1. CLONAZEPAM [Suspect]
     Indication: SLEEP DISORDER
     Dosage: AN HOUR BEFORE BEDTIME
     Dates: start: 20111115, end: 20111126

REACTIONS (13)
  - BODY TEMPERATURE DECREASED [None]
  - LETHARGY [None]
  - WITHDRAWAL SYNDROME [None]
  - ASTHENIA [None]
  - VIITH NERVE PARALYSIS [None]
  - TREMOR [None]
  - YELLOW SKIN [None]
  - DYSARTHRIA [None]
  - DROOLING [None]
  - DYSURIA [None]
  - URINE OUTPUT DECREASED [None]
  - LOGORRHOEA [None]
  - FEELING JITTERY [None]
